FAERS Safety Report 8758508 (Version 2)
Quarter: 2012Q4

REPORT INFORMATION
  Report Type: Spontaneous
  Country: US (occurrence: None)
  Receive Date: 20120820
  Receipt Date: 20121009
  Transmission Date: 20130627
  Serious: Yes (Death, Hospitalization)
  Sender: FDA-Public Use
  Company Number: DSA_58952_2012

PATIENT
  Age: 64 Year
  Sex: Female

DRUGS (16)
  1. XENAZINE [Suspect]
     Indication: CHOREA
     Route: 048
     Dates: start: 20120302, end: 20120712
  2. XENAZINE [Suspect]
     Indication: CHOREA
     Dosage: (DF)
     Dates: start: 2007
  3. AMLODIPINE [Concomitant]
  4. RAMIPRIL [Concomitant]
  5. METOPROLOL [Concomitant]
  6. PLAVIX [Concomitant]
  7. LIPITOR [Concomitant]
  8. LANSOPRAZOLE [Concomitant]
  9. DIFLUCAN [Concomitant]
  10. CITALOPRAM [Concomitant]
  11. LORTAB [Concomitant]
  12. PREMARIN [Concomitant]
  13. MIRTAZAPINE [Concomitant]
  14. TOVIAZ [Concomitant]
  15. ATIVAN [Concomitant]
  16. TEMAZEPAM [Concomitant]

REACTIONS (1)
  - Death [None]
